FAERS Safety Report 14712760 (Version 1)
Quarter: 2018Q2

REPORT INFORMATION
  Report Type: Report from Study
  Country: CN (occurrence: CN)
  Receive Date: 20180404
  Receipt Date: 20180404
  Transmission Date: 20180711
  Serious: Yes (Hospitalization, Other)
  Sender: FDA-Public Use
  Company Number: CN-ACCORD-065195

PATIENT
  Age: 9 Year
  Sex: Male

DRUGS (2)
  1. METHOTREXATE. [Suspect]
     Active Substance: METHOTREXATE
     Indication: ACUTE LYMPHOCYTIC LEUKAEMIA
     Dosage: 5 G/M2, 4TH HD-MTX
  2. AMPHOTERICIN B/AMPHOTERICIN B/LIPOSOME [Interacting]
     Active Substance: AMPHOTERICIN B
     Indication: FUNGAL INFECTION

REACTIONS (10)
  - Mouth ulceration [Recovered/Resolved]
  - Drug clearance decreased [Recovered/Resolved]
  - Abdominal pain [Unknown]
  - Cardiomyopathy [Recovered/Resolved]
  - Electrolyte imbalance [Recovered/Resolved]
  - Anaemia [Recovered/Resolved]
  - Hepatic function abnormal [Recovered/Resolved]
  - Seizure [Recovered/Resolved]
  - Vomiting [Unknown]
  - Drug interaction [Unknown]
